FAERS Safety Report 6979923-5 (Version None)
Quarter: 2010Q3

REPORT INFORMATION
  Report Type: 
  Country: None (occurrence: None)
  Receive Date: 20100914
  Receipt Date: 20100903
  Transmission Date: 20110219
  Serious: Yes (Hospitalization)
  Sender: FDA-Public Use
  Company Number: US-US-EMD SERONO, INC.-7016729

PATIENT
  Sex: Female
  Weight: 97 kg

DRUGS (4)
  1. REBIF [Suspect]
     Indication: MULTIPLE SCLEROSIS
     Route: 058
     Dates: start: 20080407
  2. TRANSFUSIONS [Concomitant]
     Indication: IRON DEFICIENCY ANAEMIA
  3. NITROGLYCERIN [Concomitant]
     Indication: ARRHYTHMIA
  4. ISOSORBIDE [Concomitant]
     Indication: ARRHYTHMIA

REACTIONS (3)
  - BENIGN GASTRIC NEOPLASM [None]
  - CELLULITIS [None]
  - INFECTION [None]
